FAERS Safety Report 16387368 (Version 1)
Quarter: 2019Q2

REPORT INFORMATION
  Report Type: Report from Study
  Country: CA (occurrence: CA)
  Receive Date: 20190604
  Receipt Date: 20190604
  Transmission Date: 20190711
  Serious: Yes (Hospitalization)
  Sender: FDA-Public Use
  Company Number: CA-TOLMAR, INC.-2019CA005593

PATIENT

DRUGS (3)
  1. TAMSULOSIN [Concomitant]
     Active Substance: TAMSULOSIN
     Indication: NOCTURIA
     Dosage: UNK
     Route: 065
     Dates: start: 20180827
  2. ELIGARD [Suspect]
     Active Substance: LEUPROLIDE ACETATE
     Indication: PROSTATE CANCER
     Dosage: 22.5 MG, EVERY 3 MONTHS
     Route: 058
     Dates: start: 20160728
  3. ENZALUTAMIDE [Suspect]
     Active Substance: ENZALUTAMIDE
     Indication: PROSTATE CANCER
     Dosage: UNK, UNK
     Route: 065
     Dates: start: 20160728

REACTIONS (1)
  - Lower urinary tract symptoms [Recovered/Resolved]

NARRATIVE: CASE EVENT DATE: 20190524
